FAERS Safety Report 25615606 (Version 1)
Quarter: 2025Q3

REPORT INFORMATION
  Report Type: Spontaneous
  Country: US (occurrence: US)
  Receive Date: 20250729
  Receipt Date: 20250729
  Transmission Date: 20251021
  Serious: Yes (Other)
  Sender: MERZ
  Company Number: US-ACORDA THERAPEUTICS IRELAND LIMITED-ACO_178286_2024

PATIENT
  Age: 70 Year
  Sex: Male

DRUGS (8)
  1. INBRIJA [Interacting]
     Active Substance: LEVODOPA
     Indication: Parkinson^s disease
  2. INBRIJA [Interacting]
     Active Substance: LEVODOPA
     Indication: Peripheral sensory neuropathy
  3. RYTARY [Interacting]
     Active Substance: CARBIDOPA\LEVODOPA
     Indication: Parkinson^s disease
     Route: 065
  4. RYTARY [Interacting]
     Active Substance: CARBIDOPA\LEVODOPA
     Indication: Peripheral sensory neuropathy
  5. ONGENTYS [Interacting]
     Active Substance: OPICAPONE
     Indication: Parkinson^s disease
     Dosage: 50 MILLIGRAM, QD
     Route: 065
  6. ONGENTYS [Interacting]
     Active Substance: OPICAPONE
     Indication: Peripheral sensory neuropathy
  7. OCTAGAM IMMUNE GLOBULIN (HUMAN) [Interacting]
     Active Substance: HUMAN IMMUNOGLOBULIN G
     Indication: Parkinson^s disease
     Route: 065
     Dates: start: 2023
  8. OCTAGAM IMMUNE GLOBULIN (HUMAN) [Interacting]
     Active Substance: HUMAN IMMUNOGLOBULIN G
     Indication: Peripheral sensory neuropathy

REACTIONS (4)
  - Limb immobilisation [Unknown]
  - Body height decreased [Unknown]
  - Drug interaction [Unknown]
  - Parkinson^s disease [Unknown]
